FAERS Safety Report 20296587 (Version 1)
Quarter: 2022Q1

REPORT INFORMATION
  Report Type: Spontaneous
  Country: GB (occurrence: GB)
  Receive Date: 20220105
  Receipt Date: 20220105
  Transmission Date: 20220423
  Serious: No
  Sender: FDA-Public Use
  Company Number: None

PATIENT

DRUGS (1)
  1. IBUPROFEN [Suspect]
     Active Substance: IBUPROFEN
     Indication: Product used for unknown indication
     Dosage: USED 2-6 DAYS PER WEEK.
     Route: 045
     Dates: start: 20210901

REACTIONS (1)
  - Swollen tongue [Unknown]

NARRATIVE: CASE EVENT DATE: 20210901
